FAERS Safety Report 21281026 (Version 1)
Quarter: 2022Q3

REPORT INFORMATION
  Report Type: Spontaneous
  Country: GB (occurrence: GB)
  Receive Date: 20220901
  Receipt Date: 20220901
  Transmission Date: 20221027
  Serious: Yes (Hospitalization)
  Sender: FDA-Public Use
  Company Number: GB-ASPAR-ASP-21-00726

PATIENT
  Sex: Female

DRUGS (13)
  1. ATORVASTATIN [Suspect]
     Active Substance: ATORVASTATIN
     Indication: Product used for unknown indication
     Dosage: 10 MILLIGRAM, DAILY, 1 AT NIGHT
     Route: 065
     Dates: start: 20220726, end: 20220727
  2. LEVOTHYROXINE [Suspect]
     Active Substance: LEVOTHYROXINE
     Indication: Product used for unknown indication
     Dosage: 25 MICROGRAM, DAILY
     Route: 065
     Dates: start: 20220726, end: 20220727
  3. LEVOTHYROXINE [Suspect]
     Active Substance: LEVOTHYROXINE
     Dosage: 100 MICROGRAM, DAILY
     Route: 065
     Dates: start: 20220726, end: 20220727
  4. SITAGLIPTIN [Suspect]
     Active Substance: SITAGLIPTIN
     Indication: Product used for unknown indication
     Dosage: 25 MILLIGRAM,  MORNING AND 1 AT NIGHT
     Route: 065
     Dates: start: 20220726, end: 20220727
  5. CARBIDOPA\LEVODOPA [Suspect]
     Active Substance: CARBIDOPA\LEVODOPA
     Indication: Product used for unknown indication
     Dosage: CO-CARELDOPA 12.5/50MG - 2 IN MORNING
     Route: 065
     Dates: start: 20220726, end: 20220727
  6. CARBIDOPA\LEVODOPA [Suspect]
     Active Substance: CARBIDOPA\LEVODOPA
     Dosage: CO-CARELDOPA 25MG/100MG - ONE AT NIGHT
     Route: 065
     Dates: start: 20220726, end: 20220727
  7. CHOLECALCIFEROL [Suspect]
     Active Substance: CHOLECALCIFEROL
     Indication: Product used for unknown indication
     Dosage: ONE IN MORNING
     Route: 065
     Dates: start: 20220726, end: 20220727
  8. GLICLAZIDE [Suspect]
     Active Substance: GLICLAZIDE
     Indication: Product used for unknown indication
     Dosage: GLICLAZIDE 60 MR - ONE MORNING AND NIGHT
     Route: 065
     Dates: start: 20220726, end: 20220727
  9. METFORMIN [Suspect]
     Active Substance: METFORMIN HYDROCHLORIDE
     Indication: Product used for unknown indication
     Dosage: 500 MILLIGRAM, DAILY
     Route: 065
     Dates: start: 20220726, end: 20220727
  10. SENNA [Suspect]
     Active Substance: SENNA LEAF\SENNOSIDES\SENNOSIDES A AND B
     Indication: Product used for unknown indication
     Dosage: 7 MILLIGRAM, 2 DOSE/DAILY, 2 AT NIGHT
     Route: 065
     Dates: start: 20220726, end: 20220727
  11. AMITRIPTYLINE [Concomitant]
     Active Substance: AMITRIPTYLINE
     Indication: Product used for unknown indication
     Dosage: 10 MILLIGRAM, 3 AT NIGHT
     Route: 065
  12. APIXABAN [Concomitant]
     Active Substance: APIXABAN
     Indication: Product used for unknown indication
     Dosage: 2.5MG - ONE TWICE DAILY
     Route: 065
  13. ACETAMINOPHEN [Concomitant]
     Active Substance: ACETAMINOPHEN
     Indication: Product used for unknown indication
     Dosage: 1000 MILLIGRAM, 2 X 500MG THREE TIMES A DAY
     Route: 065

REACTIONS (2)
  - Circulatory collapse [Recovered/Resolved]
  - Product dispensing error [Recovered/Resolved]

NARRATIVE: CASE EVENT DATE: 20220726
